FAERS Safety Report 19733827 (Version 3)
Quarter: 2023Q2

REPORT INFORMATION
  Report Type: Report from Study
  Country: US (occurrence: US)
  Receive Date: 20210824
  Receipt Date: 20230616
  Transmission Date: 20230721
  Serious: No
  Sender: FDA-Public Use
  Company Number: US-ACADIA PHARMACEUTICALS INC.-ACA-2021-PIM-002813

PATIENT
  Age: 76 Year
  Sex: Male
  Weight: 63 kg

DRUGS (16)
  1. NUPLAZID [Suspect]
     Active Substance: PIMAVANSERIN TARTRATE
     Indication: Parkinson^s disease psychosis
     Dosage: 34 MILLIGRAM, QD AT NIGHT
     Route: 048
     Dates: start: 20210723
  2. NUPLAZID [Suspect]
     Active Substance: PIMAVANSERIN TARTRATE
     Indication: Hallucination
     Dosage: 34 MILLIGRAM, QD
     Route: 048
  3. NUPLAZID [Suspect]
     Active Substance: PIMAVANSERIN TARTRATE
     Indication: Delusion
  4. NUPLAZID [Suspect]
     Active Substance: PIMAVANSERIN TARTRATE
     Indication: Hallucination, auditory
  5. RYTARY [Concomitant]
     Active Substance: CARBIDOPA\LEVODOPA
  6. ROPINIROLE [Concomitant]
     Active Substance: ROPINIROLE
  7. LISINOPRIL [Concomitant]
     Active Substance: LISINOPRIL
  8. AMLODIPINE [Concomitant]
     Active Substance: AMLODIPINE BESYLATE
  9. OMEPRAZOLE [Concomitant]
     Active Substance: OMEPRAZOLE
  10. SERTRALINE [Concomitant]
     Active Substance: SERTRALINE HYDROCHLORIDE
  11. CLONAZEPAM [Concomitant]
     Active Substance: CLONAZEPAM
  12. PRAVASTATIN [Concomitant]
     Active Substance: PRAVASTATIN
  13. TAMSULOSIN [Concomitant]
     Active Substance: TAMSULOSIN
  14. METFORMIN [Concomitant]
     Active Substance: METFORMIN HYDROCHLORIDE
  15. DONEPEZIL [Concomitant]
     Active Substance: DONEPEZIL
  16. TROSPIUM CHLORIDE [Concomitant]
     Active Substance: TROSPIUM CHLORIDE

REACTIONS (9)
  - Balance disorder [Not Recovered/Not Resolved]
  - Tremor [Not Recovered/Not Resolved]
  - Feeling jittery [Not Recovered/Not Resolved]
  - Dyskinesia [Not Recovered/Not Resolved]
  - Product dose omission issue [Not Recovered/Not Resolved]
  - Mental disorder [Not Recovered/Not Resolved]
  - Hallucination, auditory [Not Recovered/Not Resolved]
  - Hallucination [Not Recovered/Not Resolved]
  - Hallucination, auditory [Not Recovered/Not Resolved]

NARRATIVE: CASE EVENT DATE: 20210729
